FAERS Safety Report 23537855 (Version 2)
Quarter: 2024Q1

REPORT INFORMATION
  Report Type: Report from Study
  Country: ZA (occurrence: ZA)
  Receive Date: 20240219
  Receipt Date: 20240307
  Transmission Date: 20240409
  Serious: Yes (Other)
  Sender: FDA-Public Use
  Company Number: ZA-CELLTRION INC.-2023ZA012049

PATIENT

DRUGS (6)
  1. INFLIXIMAB [Suspect]
     Active Substance: INFLIXIMAB
     Indication: Colitis ulcerative
     Dosage: 500 MG, INFUSION EVERY 7 WEEKS
     Route: 042
     Dates: start: 20220420
  2. INFLIXIMAB [Suspect]
     Active Substance: INFLIXIMAB
     Indication: Colitis ulcerative
     Dosage: 500 MG, INFUSION EVERY 7 WEEKS
     Route: 042
     Dates: start: 20240115
  3. AZATHIOPRINE [Concomitant]
     Active Substance: AZATHIOPRINE
     Dosage: 200 MG
     Dates: start: 2014
  4. MESALAMINE [Concomitant]
     Active Substance: MESALAMINE
     Dosage: 4.6 G
     Dates: start: 2012
  5. ASACOL [Concomitant]
     Active Substance: MESALAMINE
     Dosage: 2.4 G, DAILY
  6. AZASAN [Concomitant]
     Active Substance: AZATHIOPRINE
     Dosage: 150 MG, DAILY

REACTIONS (5)
  - Colitis ulcerative [Recovered/Resolved]
  - Drug level decreased [Unknown]
  - Therapeutic response shortened [Unknown]
  - Intentional product use issue [Unknown]
  - Overdose [Unknown]

NARRATIVE: CASE EVENT DATE: 20230606
